FAERS Safety Report 11480150 (Version 2)
Quarter: 2015Q3

REPORT INFORMATION
  Report Type: Spontaneous
  Country: GB (occurrence: GB)
  Receive Date: 20150909
  Receipt Date: 20150925
  Transmission Date: 20151125
  Serious: Yes (Hospitalization, Other)
  Sender: FDA-Public Use
  Company Number: GB-JNJFOC-20150901961

PATIENT
  Sex: Female

DRUGS (1)
  1. SIMPONI [Suspect]
     Active Substance: GOLIMUMAB
     Indication: PRODUCT USED FOR UNKNOWN INDICATION
     Route: 058

REACTIONS (5)
  - Surgery [Unknown]
  - Uterine leiomyoma [Unknown]
  - Helicobacter infection [Unknown]
  - Infected dermal cyst [Unknown]
  - Viral infection [Unknown]

NARRATIVE: CASE EVENT DATE: 2015
